FAERS Safety Report 17917910 (Version 12)
Quarter: 2021Q1

REPORT INFORMATION
  Report Type: Spontaneous
  Country: US (occurrence: US)
  Receive Date: 20200619
  Receipt Date: 20210305
  Transmission Date: 20210419
  Serious: Yes (Hospitalization, Other)
  Sender: FDA-Public Use
  Company Number: US-PFIZER INC-2020237879

PATIENT
  Age: 78 Year
  Sex: Female

DRUGS (1)
  1. TOVIAZ [Suspect]
     Active Substance: FESOTERODINE FUMARATE
     Dosage: 8 MG, 1X/DAY (8 MG ER TABLET BY MOUTH ONCE A DAY)
     Route: 048

REACTIONS (11)
  - Feeling abnormal [Unknown]
  - Vomiting [Unknown]
  - Malaise [Unknown]
  - Product dispensing error [Unknown]
  - Urinary tract infection [Unknown]
  - Loss of dreaming [Unknown]
  - Pain [Unknown]
  - Breast mass [Unknown]
  - Breast cancer [Unknown]
  - Dysphagia [Unknown]
  - Psychiatric symptom [Unknown]
